FAERS Safety Report 24442584 (Version 2)
Quarter: 2024Q4

REPORT INFORMATION
  Report Type: Report from Study
  Country: GB (occurrence: GB)
  Receive Date: 20241016
  Receipt Date: 20241112
  Transmission Date: 20250115
  Serious: Yes (Other)
  Sender: SAMSUNG BIOEPIS
  Company Number: GB-SAMSUNG BIOEPIS-SB-2024-25639

PATIENT
  Age: 74 Year
  Sex: Female

DRUGS (1)
  1. ETANERCEPT [Suspect]
     Active Substance: ETANERCEPT
     Indication: Rheumatoid arthritis
     Route: 058

REACTIONS (5)
  - Infection [Unknown]
  - Lower respiratory tract infection [Unknown]
  - Cough [Unknown]
  - Immunodeficiency [Unknown]
  - Bacterial infection [Unknown]
